FAERS Safety Report 4307872-X (Version None)
Quarter: 2004Q1

REPORT INFORMATION
  Report Type: 
  Country: None (occurrence: None)
  Receive Date: 20040226
  Receipt Date: 20030203
  Transmission Date: 20041129
  Serious: Yes (Hospitalization, Other)
  Sender: FDA-Public Use
  Company Number: 2002137878US

PATIENT
  Sex: Female
  Weight: 83.4 kg

DRUGS (10)
  1. CELEBREX [Suspect]
     Indication: PAIN
     Dosage: UNK, UNK; ORAL
     Route: 048
     Dates: start: 20020903
  2. DARVON [Concomitant]
  3. SYNTHROID [Concomitant]
  4. PENICILLIN-VK [Concomitant]
  5. PRIOLEC [Concomitant]
  6. LIPITOR [Concomitant]
  7. LASIX [Concomitant]
  8. XANAX [Concomitant]
  9. CAPTOPRIL [Concomitant]
  10. GLUCOTROL XL [Concomitant]

REACTIONS (7)
  - BURNING SENSATION [None]
  - CANDIDIASIS [None]
  - GASTRIC HAEMORRHAGE [None]
  - HAEMATOCHEZIA [None]
  - HAEMATURIA [None]
  - PRURITUS GENERALISED [None]
  - RASH GENERALISED [None]
